FAERS Safety Report 6716343-2 (Version None)
Quarter: 2010Q2

REPORT INFORMATION
  Report Type: 
  Country: None (occurrence: None)
  Receive Date: 20100506
  Receipt Date: 20100506
  Transmission Date: 20101027
  Serious: Yes (Hospitalization)
  Sender: FDA-Public Use
  Company Number: None

PATIENT
  Age: 70 Year
  Sex: Female
  Weight: 38.2 kg

DRUGS (4)
  1. DEXTROAMPHETAMINE/AMPHETAMINE [Suspect]
     Indication: DRUG ABUSE
     Dosage: UNKNOWN X1 PO
     Route: 048
     Dates: start: 20100224
  2. MORPHINE SULFATE [Concomitant]
  3. CLONAZEPAM [Concomitant]
  4. ZOLPIDEM [Concomitant]

REACTIONS (7)
  - ACTIVITIES OF DAILY LIVING IMPAIRED [None]
  - AGITATION [None]
  - DRUG SCREEN POSITIVE [None]
  - DRUG WITHDRAWAL SYNDROME [None]
  - HALLUCINATION [None]
  - MENTAL STATUS CHANGES [None]
  - SELF-MEDICATION [None]
